FAERS Safety Report 5838395-4 (Version None)
Quarter: 2008Q3

REPORT INFORMATION
  Report Type: 
  Country: None (occurrence: None)
  Receive Date: 20080806
  Receipt Date: 20080724
  Transmission Date: 20090109
  Serious: Yes (Hospitalization)
  Sender: FDA-Public Use
  Company Number: AZAUS200800235

PATIENT
  Age: 78 Year
  Sex: Female
  Weight: 74 kg

DRUGS (7)
  1. VIDAZA [Suspect]
     Indication: MYELODYSPLASTIC SYNDROME
     Dosage: (100 MG/M2, DAILY X 5 DAYS), INTRAVENOUS
     Route: 042
     Dates: start: 20070806, end: 20070810
  2. METFORMIN HCL [Concomitant]
  3. MECLIZINE [Concomitant]
  4. ACYCLOVIR [Concomitant]
  5. NAPROXEN [Concomitant]
  6. LUMIGAN EYE DROPS(BIMATOPROST) [Concomitant]
  7. COSOPT(COSOPT [Concomitant]

REACTIONS (12)
  - APPENDICEAL ABSCESS [None]
  - APPENDICITIS PERFORATED [None]
  - BACTERIAL CULTURE POSITIVE [None]
  - CELLULITIS [None]
  - CONFUSIONAL STATE [None]
  - DIARRHOEA [None]
  - ESCHERICHIA INFECTION [None]
  - NEUTROPENIA [None]
  - POST PROCEDURAL COMPLICATION [None]
  - PROTEUS INFECTION [None]
  - STREPTOCOCCAL INFECTION [None]
  - WHITE BLOOD CELL COUNT DECREASED [None]
